FAERS Safety Report 21745635 (Version 2)
Quarter: 2023Q2

REPORT INFORMATION
  Report Type: Report from Study
  Country: US (occurrence: US)
  Receive Date: 20221219
  Receipt Date: 20230403
  Transmission Date: 20230721
  Serious: Yes (Other)
  Sender: FDA-Public Use
  Company Number: US-UCBSA-2022070726

PATIENT
  Sex: Female

DRUGS (1)
  1. CERTOLIZUMAB PEGOL [Suspect]
     Active Substance: CERTOLIZUMAB PEGOL
     Indication: Psoriatic arthropathy
     Dosage: 400 MILLIGRAM (2 X200 MG/ML), EV 2 WEEKS(QOW) 2 INJECTIONS EVERY 2 WEEKS
     Dates: start: 20220718

REACTIONS (4)
  - Psoriatic arthropathy [Not Recovered/Not Resolved]
  - Psoriasis [Not Recovered/Not Resolved]
  - Mycobacterium tuberculosis complex test positive [Not Recovered/Not Resolved]
  - Drug ineffective [Unknown]
